FAERS Safety Report 8185303-X (Version None)
Quarter: 2012Q1

REPORT INFORMATION
  Report Type: 
  Country: None (occurrence: None)
  Receive Date: 20120305
  Receipt Date: 20120227
  Transmission Date: 20120608
  Serious: Yes (Hospitalization, Other)
  Sender: FDA-Public Use
  Company Number: PHEH2011US012723

PATIENT
  Age: 58 Year
  Sex: Female

DRUGS (9)
  1. DETROL [Concomitant]
     Dosage: UNK UKN, UNK
  2. MULTIHANCE [Concomitant]
     Dosage: 20 ML, UNK
     Route: 042
  3. VITAMIN D [Concomitant]
     Dosage: UNK UKN, UNK
  4. OXYBUTYNIN [Concomitant]
     Dosage: 5 MG, UNK
  5. ACTH [Concomitant]
     Dosage: 80 U, UNK
  6. STEROIDS NOS [Concomitant]
     Dosage: UNK UKN, UNK
     Route: 042
  7. PREDNISONE TAB [Concomitant]
     Dosage: 500 MG, UNK
  8. GILENYA [Suspect]
     Dosage: 0.5 MG, UNK
  9. KEPPRA [Concomitant]
     Dosage: 1000 MG, UNK

REACTIONS (9)
  - HEMIPARESIS [None]
  - CONVULSION [None]
  - CENTRAL NERVOUS SYSTEM LESION [None]
  - HYPERTENSION [None]
  - ENCEPHALOPATHY [None]
  - HALLUCINATION [None]
  - MENTAL STATUS CHANGES [None]
  - PSYCHOTIC DISORDER [None]
  - POSTERIOR REVERSIBLE ENCEPHALOPATHY SYNDROME [None]
